FAERS Safety Report 9520655 (Version 1)
Quarter: 2013Q3

REPORT INFORMATION
  Report Type: Report from Study
  Country: FR (occurrence: FR)
  Receive Date: 20130913
  Receipt Date: 20130913
  Transmission Date: 20140515
  Serious: Yes (Hospitalization)
  Sender: FDA-Public Use
  Company Number: FR-ROCHE-1273891

PATIENT
  Age: 66 Year
  Sex: Female
  Weight: 56 kg

DRUGS (9)
  1. RIBAVIRIN [Suspect]
     Indication: HEPATITIS C
     Route: 048
     Dates: start: 20130625
  2. SOFOSBUVIR [Suspect]
     Indication: HEPATITIS C
     Route: 048
     Dates: start: 20130625
  3. NEORECORMON [Concomitant]
     Route: 065
     Dates: start: 20130709
  4. IMOVANE [Concomitant]
     Route: 065
     Dates: start: 20130709
  5. REVOLADE [Concomitant]
     Route: 065
     Dates: start: 20130625
  6. SPIRONOLACTONE [Concomitant]
     Route: 065
     Dates: start: 2013
  7. ADVAGRAF [Concomitant]
     Route: 065
     Dates: start: 200510
  8. ATARAX (FRANCE) [Concomitant]
  9. AMLOR [Concomitant]

REACTIONS (2)
  - Ascites [Recovered/Resolved]
  - Diabetes mellitus [Recovered/Resolved]
